FAERS Safety Report 25997782 (Version 2)
Quarter: 2025Q4

REPORT INFORMATION
  Report Type: Report from Study
  Country: US (occurrence: US)
  Receive Date: 20251105
  Receipt Date: 20251202
  Transmission Date: 20260118
  Serious: Yes (Hospitalization, Other)
  Sender: ALEXION PHARMACEUTICALS
  Company Number: US-AstraZeneca-CH-00982607A

PATIENT
  Sex: Male

DRUGS (1)
  1. EPLONTERSEN SODIUM [Suspect]
     Active Substance: EPLONTERSEN SODIUM
     Indication: Amyloidosis
     Dosage: UNK, QMONTH

REACTIONS (3)
  - Hallucination [Not Recovered/Not Resolved]
  - Amnesia [Unknown]
  - Psychotic disorder [Not Recovered/Not Resolved]
